FAERS Safety Report 10881456 (Version 2)
Quarter: 2016Q4

REPORT INFORMATION
  Report Type: Spontaneous
  Country: FR (occurrence: FR)
  Receive Date: 20150303
  Receipt Date: 20161005
  Transmission Date: 20170206
  Serious: Yes (Death, Hospitalization, Other)
  Sender: FDA-Public Use
  Company Number: FR-BRISTOL-MYERS SQUIBB COMPANY-BMS-2015-010441

PATIENT
  Age: 77 Year
  Sex: Male

DRUGS (1)
  1. YERVOY [Suspect]
     Active Substance: IPILIMUMAB
     Indication: METASTATIC MALIGNANT MELANOMA
     Dosage: 3 MG/KG, Q3WK
     Route: 042
     Dates: start: 20141114, end: 20141231

REACTIONS (2)
  - Pulmonary embolism [Unknown]
  - Colitis [Fatal]

NARRATIVE: CASE EVENT DATE: 20150117
